FAERS Safety Report 6223954-X (Version None)
Quarter: 2009Q2

REPORT INFORMATION
  Report Type: 
  Country: None (occurrence: None)
  Receive Date: 20090612
  Receipt Date: 20090304
  Transmission Date: 20091009
  Serious: No
  Sender: FDA-Public Use
  Company Number: US-ABBOTT-09P-163-0560985-00

PATIENT
  Sex: Female
  Weight: 108.05 kg

DRUGS (2)
  1. HUMIRA [Suspect]
     Indication: PSORIATIC ARTHROPATHY
     Route: 058
     Dates: start: 20070301
  2. CLARITIN [Concomitant]
     Indication: SEASONAL ALLERGY
     Dosage: UNKNOWN
     Route: 048

REACTIONS (1)
  - INJECTION SITE IRRITATION [None]
